FAERS Safety Report 7312549-2 (Version None)
Quarter: 2011Q1

REPORT INFORMATION
  Report Type: 
  Country: None (occurrence: None)
  Receive Date: 20110224
  Receipt Date: 20110209
  Transmission Date: 20110831
  Serious: Yes (Hospitalization)
  Sender: FDA-Public Use
  Company Number: DE-GENENTECH-313772

PATIENT
  Sex: Female
  Weight: 60 kg

DRUGS (1)
  1. MABTHERA [Suspect]
     Indication: NON-HODGKIN'S LYMPHOMA
     Dosage: 500 MG, UNK
     Route: 065
     Dates: start: 20110119, end: 20110120

REACTIONS (8)
  - C-REACTIVE PROTEIN INCREASED [None]
  - WHITE BLOOD CELL DISORDER [None]
  - HEPATOTOXICITY [None]
  - THROMBOCYTOPENIA [None]
  - PLATELET COUNT DECREASED [None]
  - HEPATIC ENZYME INCREASED [None]
  - VOMITING [None]
  - PROCALCITONIN INCREASED [None]
